FAERS Safety Report 19456260 (Version 1)
Quarter: 2021Q2

REPORT INFORMATION
  Report Type: Spontaneous
  Country: GB (occurrence: GB)
  Receive Date: 20210624
  Receipt Date: 20210624
  Transmission Date: 20210717
  Serious: Yes (Other)
  Sender: FDA-Public Use
  Company Number: GB-UCBSA-2021029017

PATIENT
  Age: 27 Year
  Sex: Female
  Weight: 80 kg

DRUGS (4)
  1. CORTISOL [HYDROCORTISONE] [Concomitant]
     Indication: NASAL OBSTRUCTION
     Dosage: UNK
  2. KEPPRA [Suspect]
     Active Substance: LEVETIRACETAM
     Indication: EPILEPSY
     Dosage: 1000 MG
     Route: 048
     Dates: start: 20210222
  3. LORATADIN [Concomitant]
     Active Substance: LORATADINE
     Indication: ILL-DEFINED DISORDER
     Dosage: UNK
  4. MOMETASONE FUROATE. [Concomitant]
     Active Substance: MOMETASONE FUROATE
     Indication: ILL-DEFINED DISORDER
     Dosage: UNK

REACTIONS (6)
  - Attention deficit hyperactivity disorder [Not Recovered/Not Resolved]
  - Alopecia [Not Recovered/Not Resolved]
  - Nasal obstruction [Not Recovered/Not Resolved]
  - Memory impairment [Not Recovered/Not Resolved]
  - Irritability [Not Recovered/Not Resolved]
  - Exercise tolerance decreased [Recovering/Resolving]

NARRATIVE: CASE EVENT DATE: 20210308
